FAERS Safety Report 25545686 (Version 1)
Quarter: 2025Q3

REPORT INFORMATION
  Report Type: Spontaneous
  Country: US (occurrence: US)
  Receive Date: 20250712
  Receipt Date: 20250712
  Transmission Date: 20251020
  Serious: No
  Sender: UNITED THERAPEUTICS
  Company Number: US-UNITED THERAPEUTICS-UNT-2025-021246

PATIENT
  Sex: Female

DRUGS (4)
  1. TYVASO [Suspect]
     Active Substance: TREPROSTINIL
     Indication: Product used for unknown indication
  2. TYVASO [Suspect]
     Active Substance: TREPROSTINIL
  3. OXYGEN [Concomitant]
     Active Substance: OXYGEN
     Indication: Dyspnoea
  4. OXYGEN [Concomitant]
     Active Substance: OXYGEN
     Indication: Dyspnoea

REACTIONS (3)
  - Dyspnoea [Recovering/Resolving]
  - Fatigue [Recovering/Resolving]
  - Product dose omission issue [Recovered/Resolved]

NARRATIVE: CASE EVENT DATE: 20250101
